FAERS Safety Report 16243364 (Version 1)
Quarter: 2019Q2

REPORT INFORMATION
  Report Type: Spontaneous
  Country: CN (occurrence: CN)
  Receive Date: 20190426
  Receipt Date: 20190426
  Transmission Date: 20190711
  Serious: Yes (Other)
  Sender: FDA-Public Use
  Company Number: CN-PFIZER INC-2019175037

PATIENT
  Age: 76 Year
  Sex: Male
  Weight: 62 kg

DRUGS (5)
  1. SULPERAZON [Suspect]
     Active Substance: CEFOPERAZONE SODIUM\SULBACTAM SODIUM
     Indication: LUNG INFECTION
     Dosage: 3.000 G, 3X/DAY
     Route: 041
     Dates: start: 20190407
  2. AN SAI MA [Concomitant]
     Indication: LUNG INFECTION
     Dosage: 100.000 ML, 1X/DAY
     Route: 041
     Dates: start: 20190407, end: 20190416
  3. FUDOSTEINE [Concomitant]
     Active Substance: FUDOSTEINE
     Indication: LUNG INFECTION
     Dosage: 0.400 G, 3X/DAY
     Route: 048
     Dates: start: 20190407, end: 20190416
  4. DALTEPARIN SODIUM [Concomitant]
     Active Substance: DALTEPARIN SODIUM
     Indication: COAGULOPATHY
     Dosage: 5000.000 IU, 2X/DAY
     Route: 058
     Dates: start: 20190407, end: 20190416
  5. ZYVOX [Suspect]
     Active Substance: LINEZOLID
     Indication: LUNG INFECTION
     Dosage: 600.000 MG, 2X/DAY
     Route: 041
     Dates: start: 20190407

REACTIONS (3)
  - Gamma-glutamyltransferase increased [Recovering/Resolving]
  - Aspartate aminotransferase increased [Recovering/Resolving]
  - Condition aggravated [Recovering/Resolving]

NARRATIVE: CASE EVENT DATE: 20190415
